FAERS Safety Report 8607993-7 (Version None)
Quarter: 2012Q3

REPORT INFORMATION
  Report Type: 
  Country: None (occurrence: None)
  Receive Date: 20120802
  Receipt Date: 20120723
  Transmission Date: 20120928
  Serious: Yes (Hospitalization)
  Sender: FDA-Public Use
  Company Number: DSA_58686_2012

PATIENT
  Age: 48 Year
  Sex: Male

DRUGS (10)
  1. DILTIAZEM [Suspect]
     Indication: ANGINA PECTORIS
     Dosage: (90, TWICE DAILY), (180 MG BID)
     Dates: start: 20120401, end: 20120423
  2. ATORVASTATIN [Concomitant]
  3. IBUPROFEN [Concomitant]
  4. OMEPRAZOLE [Concomitant]
  5. ALBUTEROL SULATE [Concomitant]
  6. ASPIRIN [Concomitant]
  7. NICORANDIL [Concomitant]
  8. LEVOTHYROXINE SODIUM [Concomitant]
  9. RANOLAZINE [Suspect]
     Indication: ANGINA PECTORIS
     Dosage: (375, TWICE DAILY)
  10. NITROGLYCERIN [Concomitant]

REACTIONS (4)
  - FEELING ABNORMAL [None]
  - INSOMNIA [None]
  - CHEST PAIN [None]
  - MUSCLE TWITCHING [None]
